FAERS Safety Report 5431060-7 (Version None)
Quarter: 2007Q3

REPORT INFORMATION
  Report Type: 
  Country: None (occurrence: None)
  Receive Date: 20070830
  Receipt Date: 20070130
  Transmission Date: 20080115
  Serious: No
  Sender: FDA-Public Use
  Company Number: A0637620A

PATIENT
  Sex: Female

DRUGS (2)
  1. WELLBUTRIN XL [Suspect]
     Route: 048
  2. SYNTHROID [Concomitant]

REACTIONS (3)
  - DRUG INEFFECTIVE [None]
  - DYSGEUSIA [None]
  - MEDICATION RESIDUE [None]
